FAERS Safety Report 10598655 (Version 2)
Quarter: 2014Q4

REPORT INFORMATION
  Report Type: Spontaneous
  Country: US (occurrence: US)
  Receive Date: 20141121
  Receipt Date: 20141130
  Transmission Date: 20150529
  Serious: No
  Sender: FDA-Public Use
  Company Number: US-TEVA-523472USA

PATIENT
  Sex: Male

DRUGS (1)
  1. COPAXONE [Suspect]
     Active Substance: GLATIRAMER ACETATE
     Indication: MULTIPLE SCLEROSIS
     Dates: start: 20140521

REACTIONS (12)
  - Fear [Unknown]
  - Disturbance in attention [Unknown]
  - Vomiting [Unknown]
  - Constipation [Unknown]
  - Panic attack [Unknown]
  - Dyspnoea [Unknown]
  - Fatigue [Unknown]
  - Dizziness [Unknown]
  - Nasopharyngitis [Unknown]
  - Paranoia [Unknown]
  - Crying [Unknown]
  - Chest pain [Unknown]

NARRATIVE: CASE EVENT DATE: 2014
